FAERS Safety Report 17519322 (Version 1)
Quarter: 2020Q1

REPORT INFORMATION
  Report Type: Spontaneous
  Country: CN (occurrence: CN)
  Receive Date: 20200309
  Receipt Date: 20200309
  Transmission Date: 20200409
  Serious: Yes (Other)
  Sender: FDA-Public Use
  Company Number: CN-ELI_LILLY_AND_COMPANY-CN202002012651

PATIENT
  Age: 56 Year
  Sex: Male
  Weight: 50 kg

DRUGS (4)
  1. ABRAXANE [Suspect]
     Active Substance: PACLITAXEL
     Indication: CHEMOTHERAPY
     Dosage: 200 MG, EVERY 7 DAYS
     Route: 041
     Dates: start: 20191212, end: 20191219
  2. GEMZAR [Suspect]
     Active Substance: GEMCITABINE HYDROCHLORIDE
     Indication: CHEMOTHERAPY
     Dosage: 1 G, CYCLICAL
     Route: 041
     Dates: start: 20191212, end: 20191212
  3. GEMZAR [Suspect]
     Active Substance: GEMCITABINE HYDROCHLORIDE
     Dosage: 600 MG, CYCLICAL
     Route: 041
     Dates: start: 20191212, end: 20191219
  4. SODIUM CHLORIDE. [Concomitant]
     Active Substance: SODIUM CHLORIDE
     Indication: VEHICLE SOLUTION USE
     Dosage: 100 ML, CYCLICAL
     Route: 041
     Dates: start: 20191212, end: 20191219

REACTIONS (3)
  - Cytopenia [Recovering/Resolving]
  - Off label use [Unknown]
  - Pruritus [Recovering/Resolving]

NARRATIVE: CASE EVENT DATE: 20191212
